FAERS Safety Report 14084952 (Version 1)
Quarter: 2017Q4

REPORT INFORMATION
  Report Type: Other
  Country: GB (occurrence: GB)
  Receive Date: 20171013
  Receipt Date: 20171013
  Transmission Date: 20180321
  Serious: Yes (Life-Threatening, Hospitalization, Other)
  Sender: FDA-Public Use
  Company Number: GB-LUPIN PHARMACEUTICALS INC.-2017-05887

PATIENT

DRUGS (2)
  1. ABACAVIR AND LAMIVUDINE [Suspect]
     Active Substance: ABACAVIR SULFATE\LAMIVUDINE
     Indication: ASYMPTOMATIC HIV INFECTION
     Dosage: 600/300
     Route: 002
     Dates: start: 20170801, end: 20170802
  2. RILPIVIRINE [Concomitant]
     Active Substance: RILPIVIRINE
     Indication: ASYMPTOMATIC HIV INFECTION
     Dosage: UNK
     Route: 065
     Dates: start: 20170801, end: 20170802

REACTIONS (9)
  - Feeling hot [Recovered/Resolved]
  - Vomiting [Recovered/Resolved]
  - Ocular hyperaemia [Recovered/Resolved]
  - Flushing [Recovered/Resolved]
  - Oral discomfort [Recovered/Resolved]
  - Liver function test increased [Unknown]
  - Hypotension [Recovered/Resolved]
  - Acute kidney injury [Recovering/Resolving]
  - Hypersensitivity [Unknown]

NARRATIVE: CASE EVENT DATE: 20170801
